FAERS Safety Report 4414828-5 (Version None)
Quarter: 2004Q3

REPORT INFORMATION
  Report Type: 
  Country: None (occurrence: None)
  Receive Date: 20040804
  Receipt Date: 20031106
  Transmission Date: 20050211
  Serious: No
  Sender: FDA-Public Use
  Company Number: US-BRISTOL-MYERS SQUIBB COMPANY-12429247

PATIENT
  Age: 54 Year
  Sex: Male
  Weight: 98 kg

DRUGS (2)
  1. GLUCOVANCE [Suspect]
     Indication: DIABETES MELLITUS
     Dosage: 5MG/500MG
     Route: 048
     Dates: start: 20031030
  2. LOTREL [Concomitant]

REACTIONS (2)
  - FLUID RETENTION [None]
  - WEIGHT INCREASED [None]
